FAERS Safety Report 19449655 (Version 3)
Quarter: 2021Q3

REPORT INFORMATION
  Report Type: Spontaneous
  Country: DE (occurrence: DE)
  Receive Date: 20210622
  Receipt Date: 20210903
  Transmission Date: 20211014
  Serious: Yes (Hospitalization, Disabling, Other)
  Sender: FDA-Public Use
  Company Number: NVSC2021DE134122

PATIENT
  Age: 61 Year
  Sex: Female
  Weight: 63 kg

DRUGS (13)
  1. PARATHYROID HORMONE [Suspect]
     Active Substance: PARATHYROID HORMONE
     Dosage: 75 UG, QD
     Route: 058
     Dates: start: 20180515, end: 20210812
  2. PARATHYROID HORMONE [Suspect]
     Active Substance: PARATHYROID HORMONE
     Dosage: 75 UG, QD
     Route: 058
     Dates: start: 20210812
  3. PANTOPRAZOLE [Suspect]
     Active Substance: PANTOPRAZOLE
     Indication: ABDOMINAL DISCOMFORT
     Dosage: 40 MG, QD
     Route: 048
  4. PARATHYROID HORMONE [Suspect]
     Active Substance: PARATHYROID HORMONE
     Dosage: 75 UG, QD
     Route: 058
     Dates: start: 20180515, end: 20210601
  5. GABAPENTIN. [Concomitant]
     Active Substance: GABAPENTIN
     Indication: PAIN
     Dosage: 200 UG,QD (100 MICROGRAM/1?0?1)
     Route: 048
  6. BENZBROMARON [Concomitant]
     Active Substance: BENZBROMARONE
     Indication: PRODUCT USED FOR UNKNOWN INDICATION
     Dosage: 100 MG, BID
     Route: 048
  7. PARATHYROID HORMONE [Suspect]
     Active Substance: PARATHYROID HORMONE
     Indication: HYPOPARATHYROIDISM
     Dosage: 50 UG, QD
     Route: 058
     Dates: start: 20180515
  8. PREDNISOLON [Concomitant]
     Active Substance: PREDNISOLONE
     Indication: POST PROCEDURAL COMPLICATION
     Dosage: 4 MG, QD
     Route: 048
  9. CALCIUM [Concomitant]
     Active Substance: CALCIUM
     Indication: PRODUCT USED FOR UNKNOWN INDICATION
     Dosage: UNK
     Route: 065
  10. RENVELA [Concomitant]
     Active Substance: SEVELAMER CARBONATE
     Indication: BLOOD PHOSPHORUS
     Dosage: 2 DF, TID
     Route: 048
  11. CELLCEPT [Concomitant]
     Active Substance: MYCOPHENOLATE MOFETIL\MYCOPHENOLATE MOFETIL HYDROCHLORIDE
     Indication: POST PROCEDURAL COMPLICATION
     Dosage: 10000 MG, QD (500 MILLIGRAM/1?0?1 )
     Route: 048
  12. ARANESP [Concomitant]
     Active Substance: DARBEPOETIN ALFA
     Indication: PRODUCT USED FOR UNKNOWN INDICATION
     Dosage: 80 MICROGRAM/1X/MONTH
     Route: 050
  13. SANDIMMUN [Concomitant]
     Active Substance: CYCLOSPORINE
     Indication: POST PROCEDURAL COMPLICATION
     Dosage: 120 MG,QD (60 MILLIGRAM/1?0?1)
     Route: 048

REACTIONS (14)
  - Pain in extremity [Recovering/Resolving]
  - Renal disorder [Recovered/Resolved]
  - Hypocalcaemia [Recovered/Resolved]
  - Gastroenteritis [Recovered/Resolved]
  - Fall [Unknown]
  - Fatigue [Recovered/Resolved]
  - Mobility decreased [Recovered/Resolved with Sequelae]
  - Asthenia [Recovered/Resolved]
  - Comminuted fracture [Recovered/Resolved]
  - Arthralgia [Recovered/Resolved with Sequelae]
  - Blood calcium abnormal [Recovered/Resolved]
  - Muscle rupture [Recovered/Resolved]
  - Optic nerve injury [Recovered/Resolved with Sequelae]
  - Product dose omission issue [Recovered/Resolved]

NARRATIVE: CASE EVENT DATE: 20200706
